FAERS Safety Report 4447456-6 (Version None)
Quarter: 2004Q3

REPORT INFORMATION
  Report Type: 
  Country: None (occurrence: None)
  Receive Date: 20040913
  Receipt Date: 20040831
  Transmission Date: 20050211
  Serious: Yes (Hospitalization)
  Sender: FDA-Public Use
  Company Number: US-JNJFOC-20040600203

PATIENT
  Sex: Female
  Weight: 68.04 kg

DRUGS (13)
  1. REMICADE [Suspect]
     Route: 042
  2. REMICADE [Suspect]
     Route: 042
  3. REMICADE [Suspect]
     Indication: CROHN'S DISEASE
     Route: 042
  4. ENTACORT [Concomitant]
  5. ENTACORT [Concomitant]
     Indication: CROHN'S DISEASE
  6. LOMOTIL [Concomitant]
  7. LOMOTIL [Concomitant]
  8. TYLENOL [Concomitant]
     Indication: PAIN
  9. TYLENOL [Concomitant]
     Indication: PREMEDICATION
     Dosage: 3 DYAS PRIOR AND 3 DAYS AFTER INFUSION
  10. 6-MP [Concomitant]
     Indication: CROHN'S DISEASE
  11. ZYRTEC [Concomitant]
     Indication: PREMEDICATION
     Dosage: 5 DYAS PRIOR AND 2 WEEKS AFTER INFUSION
  12. SOLU-MEDROL [Concomitant]
     Indication: PREMEDICATION
     Route: 042
  13. MEDROL [Concomitant]
     Dosage: AFTER INTRAVENOUS INFUSION OF INFLIXIMAB
     Route: 049

REACTIONS (3)
  - ARTHRALGIA [None]
  - ASTHENIA [None]
  - MYALGIA [None]
